FAERS Safety Report 6522241-X (Version None)
Quarter: 2009Q4

REPORT INFORMATION
  Report Type: 
  Country: None (occurrence: None)
  Receive Date: 20091230
  Receipt Date: 20091217
  Transmission Date: 20100525
  Serious: Yes (Disabling)
  Sender: FDA-Public Use
  Company Number: GB-PFIZER INC-2009311980

PATIENT

DRUGS (1)
  1. DOXYCYCLINE [Suspect]
     Indication: MALARIA PROPHYLAXIS
     Dosage: DAILY
     Route: 064

REACTIONS (1)
  - DRUG EXPOSURE DURING PREGNANCY [None]
